FAERS Safety Report 4861620-3 (Version None)
Quarter: 2005Q4

REPORT INFORMATION
  Report Type: 
  Country: None (occurrence: None)
  Receive Date: 20051216
  Receipt Date: 20051205
  Transmission Date: 20060501
  Serious: Yes (Hospitalization, Other)
  Sender: FDA-Public Use
  Company Number: 2005165339

PATIENT
  Sex: Female
  Weight: 81.6475 kg

DRUGS (14)
  1. NEURONTIN [Suspect]
     Indication: NEUROPATHY
  2. NORVASC [Suspect]
     Indication: HYPERTENSION
     Dosage: 5 MG (5 MG, DAILY),
  3. LYRICA [Suspect]
     Indication: NEUROPATHY
     Dosage: 250 MG (50 MG, DAILY),
     Dates: start: 20050928
  4. ATENOLOL [Concomitant]
  5. PREDNISONE [Concomitant]
  6. POTASSIUM (POTASSIUM) [Concomitant]
  7. LASIX [Concomitant]
  8. VITAMIN B (VITAMIN B) [Concomitant]
  9. VITAMIN B12 [Concomitant]
  10. CENTRUM SILVER (ASCORBIC ACID, CALCIUM, MINERALS NOS, RETINOL, TOCOPHE [Concomitant]
  11. VITAMIN C (VITAMIN C) [Concomitant]
  12. ALLEGRA-D 12 HOUR [Concomitant]
  13. LEXAPRO [Concomitant]
  14. XANAX [Concomitant]

REACTIONS (10)
  - ACTIVITIES OF DAILY LIVING IMPAIRED [None]
  - CATHETER RELATED INFECTION [None]
  - CELLULITIS [None]
  - CONDITION AGGRAVATED [None]
  - DRUG INEFFECTIVE [None]
  - EUPHORIC MOOD [None]
  - GRIP STRENGTH DECREASED [None]
  - HYPERTENSION [None]
  - INFLAMMATORY PAIN [None]
  - NEUROPATHY [None]
